FAERS Safety Report 22222771 (Version 1)
Quarter: 2023Q2

REPORT INFORMATION
  Report Type: Spontaneous
  Country: ES (occurrence: None)
  Receive Date: 20230418
  Receipt Date: 20230418
  Transmission Date: 20230722
  Serious: Yes (Other)
  Sender: FDA-Public Use
  Company Number: 2023A083676

PATIENT
  Sex: Female
  Weight: 54 kg

DRUGS (3)
  1. CALQUENCE [Suspect]
     Active Substance: ACALABRUTINIB
     Indication: B-cell small lymphocytic lymphoma
     Dosage: 100 MG/12H 4 DAYS/WEEK MONDAY-WEDENSDA-FRIDAY-SUNDAY
     Route: 048
     Dates: start: 20220531
  2. FAMOTIDINE (2100A) [Concomitant]
  3. FUROSEMIDE [Concomitant]
     Active Substance: FUROSEMIDE

REACTIONS (2)
  - Visual impairment [Recovering/Resolving]
  - Photopsia [Recovering/Resolving]

NARRATIVE: CASE EVENT DATE: 20230327
